FAERS Safety Report 5760680-5 (Version None)
Quarter: 2008Q2

REPORT INFORMATION
  Report Type: 
  Country: None (occurrence: None)
  Receive Date: 20080606
  Receipt Date: 20080530
  Transmission Date: 20081010
  Serious: Yes (Hospitalization)
  Sender: FDA-Public Use
  Company Number: CH-BRISTOL-MYERS SQUIBB COMPANY-14211502

PATIENT
  Age: 69 Year
  Sex: Female

DRUGS (10)
  1. TRITTICO [Suspect]
     Indication: DEPRESSION
     Dosage: FORMULATION-TABLET
     Route: 048
     Dates: start: 20080205, end: 20080219
  2. VITAMIN B-12 [Concomitant]
  3. ACETYLCYSTEINE [Concomitant]
  4. SPASMO-URGENIN [Concomitant]
  5. SPIRIVA [Concomitant]
  6. SERETIDE [Concomitant]
     Dosage: 1 DOSAGE FORM = 500 DH.
  7. ISOPTIN [Concomitant]
  8. NEBILET [Concomitant]
  9. ASPIRIN [Concomitant]
  10. MAGNESIUM LACTATE [Concomitant]

REACTIONS (10)
  - BLOOD SODIUM DECREASED [None]
  - CEREBELLAR SYNDROME [None]
  - CHRONIC OBSTRUCTIVE PULMONARY DISEASE [None]
  - COUGH [None]
  - DIZZINESS [None]
  - DYSPNOEA [None]
  - HEADACHE [None]
  - MYOCARDIAL INFARCTION [None]
  - PYREXIA [None]
  - THIRST [None]
